FAERS Safety Report 9757103 (Version 1)
Quarter: 2013Q4

REPORT INFORMATION
  Report Type: Spontaneous
  Country: US (occurrence: US)
  Receive Date: 20131213
  Receipt Date: 20131213
  Transmission Date: 20140711
  Serious: No
  Sender: FDA-Public Use
  Company Number: US-TEVA-446300USA

PATIENT
  Sex: Male

DRUGS (5)
  1. COPAXONE [Suspect]
     Indication: RELAPSING-REMITTING MULTIPLE SCLEROSIS
  2. EFFEXOR [Concomitant]
  3. AMBIEN [Concomitant]
  4. PROVIGIL [Concomitant]
  5. WELLBUTRIN [Concomitant]

REACTIONS (1)
  - Laboratory test abnormal [Unknown]
